FAERS Safety Report 4519935-4 (Version None)
Quarter: 2004Q4

REPORT INFORMATION
  Report Type: 
  Country: None (occurrence: None)
  Receive Date: 20041207
  Receipt Date: 20041104
  Transmission Date: 20050328
  Serious: Yes (Other)
  Sender: FDA-Public Use
  Company Number: US-ROCHE-385769

PATIENT
  Age: 57 Year
  Sex: Male
  Weight: 113.9 kg

DRUGS (2)
  1. PEGASYS [Suspect]
     Indication: DRUG USE FOR UNKNOWN INDICATION
     Route: 058
     Dates: start: 20040709
  2. RIBAVIRIN [Suspect]
     Indication: DRUG USE FOR UNKNOWN INDICATION
     Dosage: UNKNOWN BRAND.
     Route: 048
     Dates: start: 20040709

REACTIONS (3)
  - DEAFNESS [None]
  - EAR DISCOMFORT [None]
  - SENSATION OF PRESSURE IN EAR [None]
